FAERS Safety Report 20984723 (Version 1)
Quarter: 2022Q2

REPORT INFORMATION
  Report Type: Spontaneous
  Country: US (occurrence: None)
  Receive Date: 20220621
  Receipt Date: 20220621
  Transmission Date: 20220721
  Serious: No
  Sender: FDA-Public Use
  Company Number: US-ROCHE-2852037

PATIENT
  Sex: Female

DRUGS (2)
  1. CAPECITABINE [Suspect]
     Active Substance: CAPECITABINE
     Indication: Product used for unknown indication
     Route: 065
  2. TUKYSA [Suspect]
     Active Substance: TUCATINIB
     Indication: Breast cancer female
     Route: 065

REACTIONS (12)
  - Erythema [Unknown]
  - Skin exfoliation [Unknown]
  - Weight decreased [Unknown]
  - Blood potassium decreased [Unknown]
  - Sinus operation [Unknown]
  - Nausea [Unknown]
  - Pain in extremity [Unknown]
  - Toothache [Unknown]
  - Fatigue [Unknown]
  - Somnolence [Unknown]
  - Eye pruritus [Unknown]
  - Ocular hyperaemia [Unknown]
